FAERS Safety Report 11655936 (Version 1)
Quarter: 2015Q4

REPORT INFORMATION
  Report Type: Spontaneous
  Country: US (occurrence: US)
  Receive Date: 20151023
  Receipt Date: 20151023
  Transmission Date: 20160304
  Serious: Yes (Hospitalization, Other)
  Sender: FDA-Public Use
  Company Number: US-APOTEX-2015AP013524

PATIENT
  Age: 70 Year
  Sex: Male
  Weight: 88 kg

DRUGS (13)
  1. MAGNESIUM OXIDE. [Interacting]
     Active Substance: MAGNESIUM OXIDE
     Indication: PRODUCT USED FOR UNKNOWN INDICATION
     Dosage: 400 MG, UNK
     Route: 065
  2. PLAVIX [Interacting]
     Active Substance: CLOPIDOGREL BISULFATE
     Indication: ANTIPLATELET THERAPY
     Dosage: 75 MG, QD
     Route: 065
     Dates: start: 201504
  3. PROAIR HFA [Interacting]
     Active Substance: ALBUTEROL SULFATE
     Indication: PRODUCT USED FOR UNKNOWN INDICATION
     Route: 065
  4. KIRKLANDS CHILDRENS ALLER TEC [Interacting]
     Active Substance: CETIRIZINE HYDROCHLORIDE
     Indication: HYPERSENSITIVITY
     Route: 065
  5. CELECOXIB. [Suspect]
     Active Substance: CELECOXIB
     Indication: ARTHRITIS
     Dosage: 200 MG, QD
     Route: 048
  6. ATORVASTATIN [Interacting]
     Active Substance: ATORVASTATIN
     Indication: BLOOD CHOLESTEROL INCREASED
     Dosage: 40 MG, QD
     Route: 065
  7. TEMAZEPAM. [Interacting]
     Active Substance: TEMAZEPAM
     Indication: SLEEP DISORDER
     Dosage: 50 MG, Q.H.S.
     Route: 065
  8. SPIRIVA [Interacting]
     Active Substance: TIOTROPIUM BROMIDE MONOHYDRATE
     Indication: DYSPNOEA
     Dosage: 1 CAPSULE IN THING EVERY DAY
     Route: 065
  9. VITAMIN B12 [Interacting]
     Active Substance: CYANOCOBALAMIN
     Indication: PRODUCT USED FOR UNKNOWN INDICATION
     Dosage: 2500 MG, UNK
     Route: 065
  10. LYRICA [Suspect]
     Active Substance: PREGABALIN
     Indication: NEUROPATHY PERIPHERAL
     Dosage: 100 MG, BID
     Route: 048
  11. PANTOPRAZOLE [Interacting]
     Active Substance: PANTOPRAZOLE SODIUM
     Indication: DYSPEPSIA
     Dosage: 40 MG, UNK
     Route: 065
  12. SYMBICORT [Interacting]
     Active Substance: BUDESONIDE\FORMOTEROL FUMARATE DIHYDRATE
     Indication: DYSPNOEA
     Dosage: 2 PUFFS ONCE A DAY
     Route: 065
  13. ASPIRIN                            /00002701/ [Interacting]
     Active Substance: ASPIRIN
     Indication: ANTIPLATELET THERAPY
     Dosage: 81 MG A DAY
     Route: 065

REACTIONS (5)
  - Amnesia [None]
  - Ischaemic stroke [Not Recovered/Not Resolved]
  - Stent placement [Recovered/Resolved]
  - Visual impairment [None]
  - Aortic valve replacement [Recovered/Resolved]

NARRATIVE: CASE EVENT DATE: 20150421
